FAERS Safety Report 8789946 (Version 3)
Quarter: 2018Q1

REPORT INFORMATION
  Report Type: Spontaneous
  Country: US (occurrence: US)
  Receive Date: 20120917
  Receipt Date: 20180320
  Transmission Date: 20180509
  Serious: Yes (Hospitalization, Other)
  Sender: FDA-Public Use
  Company Number: US-009507513-1209USA003361

PATIENT
  Sex: Male

DRUGS (6)
  1. FUZEON [Suspect]
     Active Substance: ENFUVIRTIDE
     Dosage: 2 UNITS, QD
     Route: 064
  2. NORVIR [Suspect]
     Active Substance: RITONAVIR
     Dosage: 2 UNITS, QD
     Route: 064
  3. ISENTRESS [Suspect]
     Active Substance: RALTEGRAVIR POTASSIUM
     Dosage: 800 MG, QD
     Route: 064
  4. INTELENCE [Suspect]
     Active Substance: ETRAVIRINE
     Dosage: 200 MG, BID
     Route: 064
  5. PREZISTA [Suspect]
     Active Substance: DARUNAVIR ETHANOLATE
     Dosage: 600 MG, BID
     Route: 064
  6. RETROVIR [Suspect]
     Active Substance: ZIDOVUDINE
     Dosage: UNK
     Route: 064

REACTIONS (1)
  - Thrombocytopenia [Unknown]
